FAERS Safety Report 8256342-5 (Version None)
Quarter: 2012Q1

REPORT INFORMATION
  Report Type: 
  Country: None (occurrence: None)
  Receive Date: 20120322
  Receipt Date: 20111129
  Transmission Date: 20120608
  Serious: Yes (Hospitalization)
  Sender: FDA-Public Use
  Company Number: UTC-012046

PATIENT
  Age: 41 Year
  Sex: Female
  Weight: 86.4 kg

DRUGS (5)
  1. DIURETICS (DIURETICS) [Concomitant]
  2. ASPIRIN [Concomitant]
  3. TYVASO [Suspect]
     Indication: COR PULMONALE CHRONIC
     Dosage: 216 MCG (54 MCG, 4 IN 1 D), INHALATION
     Route: 055
     Dates: start: 20091201
  4. OXYGEN (OXYGEN) [Concomitant]
  5. REVATIO [Concomitant]

REACTIONS (2)
  - HYPERTENSION [None]
  - SYSTEMIC LUPUS ERYTHEMATOSUS [None]
